FAERS Safety Report 6837240-8 (Version None)
Quarter: 2010Q3

REPORT INFORMATION
  Report Type: 
  Country: None (occurrence: None)
  Receive Date: 20100713
  Receipt Date: 20070509
  Transmission Date: 20110219
  Serious: No
  Sender: FDA-Public Use
  Company Number: US-PFIZER INC-2007038139

PATIENT
  Sex: Male
  Weight: 100 kg

DRUGS (5)
  1. CHANTIX [Suspect]
     Indication: SMOKING CESSATION THERAPY
     Route: 048
     Dates: start: 20070502, end: 20070509
  2. LIPITOR [Concomitant]
  3. LISINOPRIL [Concomitant]
  4. VITAMINS [Concomitant]
  5. OTHER COMBINATIONS OF NUTRIENTS [Concomitant]

REACTIONS (6)
  - ABDOMINAL DISCOMFORT [None]
  - FATIGUE [None]
  - INSOMNIA [None]
  - LISTLESS [None]
  - MALAISE [None]
  - SOMNOLENCE [None]
